FAERS Safety Report 14332069 (Version 11)
Quarter: 2020Q2

REPORT INFORMATION
  Report Type: Spontaneous
  Country: DE (occurrence: DE)
  Receive Date: 20171228
  Receipt Date: 20200423
  Transmission Date: 20200713
  Serious: Yes (Death, Life-Threatening, Hospitalization, Other)
  Sender: FDA-Public Use
  Company Number: DE-AUROBINDO-AUR-APL-2017-47223

PATIENT
  Age: 44 Year
  Sex: Female
  Weight: 64 kg

DRUGS (76)
  1. HYDROMORPHONE [Suspect]
     Active Substance: HYDROMORPHONE
     Dosage: 8 MILLIGRAM, ONCE A DAY
     Route: 048
     Dates: start: 20180225, end: 20180225
  2. HYDROMORPHONE [Suspect]
     Active Substance: HYDROMORPHONE
     Dosage: 8 MILLIGRAM, 3 TIMES A DAY
     Route: 048
     Dates: start: 20180226
  3. HYDROMORPHONE [Suspect]
     Active Substance: HYDROMORPHONE
     Dosage: 4 MILLIGRAM, 3 TIMES A DAY
     Route: 048
     Dates: start: 20180516
  4. TAFINLAR [Suspect]
     Active Substance: DABRAFENIB MESYLATE
     Dosage: 300 MILLIGRAM, ONCE A DAY, 150 MG, BID
     Route: 048
     Dates: start: 20161117, end: 20180513
  5. ZOFRAN [Concomitant]
     Active Substance: ONDANSETRON HYDROCHLORIDE
     Indication: MALIGNANT MELANOMA
     Dosage: 8 MILLIGRAM, ONCE A DAY, 8 MG, BID
     Route: 048
     Dates: start: 20161115, end: 20170307
  6. BIFITERAL [Concomitant]
     Active Substance: LACTULOSE
     Dosage: 10 GRAM, ONCE A DAY
     Route: 048
     Dates: start: 20180312
  7. LAXANS [Concomitant]
     Indication: PRODUCT USED FOR UNKNOWN INDICATION
     Dosage: 15 GTT DROPS, ONCE A DAY
     Route: 048
     Dates: start: 20180225, end: 20180303
  8. MCP [Concomitant]
     Active Substance: METOCLOPRAMIDE HYDROCHLORIDE
     Dosage: 10 MILLIGRAM, 3 TIMES A DAY
     Route: 048
     Dates: start: 20170118, end: 20180224
  9. NOVAMINOSULFON [Concomitant]
     Active Substance: METAMIZOLE SODIUM
     Dosage: 100 MILLIGRAM, 3 TIMES A DAY
     Route: 048
     Dates: start: 20170407, end: 20170916
  10. NOVAMINOSULFON [Concomitant]
     Active Substance: METAMIZOLE SODIUM
     Dosage: 1000 MILLIGRAM, ONCE A DAY
     Route: 048
     Dates: start: 20170917, end: 20170917
  11. NOVAMINOSULFON [Concomitant]
     Active Substance: METAMIZOLE SODIUM
     Dosage: 1 GRAM, 3 TIMES A DAY
     Route: 048
     Dates: start: 20180516
  12. TAFINLAR [Suspect]
     Active Substance: DABRAFENIB MESYLATE
     Dosage: 300 MILLIGRAM, ONCE A DAY, 150 MG, BID
     Route: 048
     Dates: start: 20161019, end: 20161114
  13. IBUPROFEN. [Concomitant]
     Active Substance: IBUPROFEN
     Indication: MALIGNANT MELANOMA
     Dosage: 600 MILLIGRAM, ONCE A DAY
     Route: 048
     Dates: start: 20170214, end: 20170406
  14. ZOFRAN [Concomitant]
     Active Substance: ONDANSETRON HYDROCHLORIDE
     Dosage: 4 MILLIGRAM, ONCE A DAY
     Route: 048
     Dates: start: 20180302, end: 20180302
  15. DEXAMETHASONE. [Concomitant]
     Active Substance: DEXAMETHASONE
     Indication: INTRACRANIAL PRESSURE INCREASED
     Dosage: 4 MILLIGRAM, ONCE A DAY, 600 MG, QD
     Route: 048
     Dates: start: 20171129
  16. PREGABA [Concomitant]
     Active Substance: PREGABALIN
     Dosage: 75 MILLIGRAM, ONCE A DAY, 75 MG, BID
     Route: 048
     Dates: start: 20170906, end: 20180224
  17. IPILIMUMAB [Concomitant]
     Active Substance: IPILIMUMAB
     Indication: MALIGNANT MELANOMA
     Dosage: 3 MILLIGRAM/KILOGRAM, 3 TIMES A WEEK
     Route: 042
     Dates: start: 20181024, end: 20181024
  18. MCP [Concomitant]
     Active Substance: METOCLOPRAMIDE HYDROCHLORIDE
     Dosage: 10 MILLIGRAM, 3 TIMES A DAY
     Route: 048
     Dates: start: 20180228, end: 20180303
  19. NOVAMINOSULFON [Concomitant]
     Active Substance: METAMIZOLE SODIUM
     Dosage: 1000 MILLIGRAM, 3 TIMES A DAY
     Route: 048
     Dates: start: 20170829
  20. MIRTAZAPINE. [Concomitant]
     Active Substance: MIRTAZAPINE
     Indication: PRODUCT USED FOR UNKNOWN INDICATION
     Dosage: 15 MILLIGRAM, ONCE A DAY
     Route: 048
     Dates: start: 20170920, end: 20170922
  21. TRAMETINIB [Suspect]
     Active Substance: TRAMETINIB
     Dosage: 2 MILLIGRAM, ONCE A DAY
     Route: 048
     Dates: start: 20161117, end: 20161122
  22. TAFINLAR [Suspect]
     Active Substance: DABRAFENIB MESYLATE
     Dosage: 2 MILLIGRAM, ONCE A DAY
     Route: 048
     Dates: start: 20161123, end: 20180513
  23. DEXAMETHASONE. [Concomitant]
     Active Substance: DEXAMETHASONE
     Dosage: 8 MILLIGRAM, 3 TIMES A DAY
     Route: 042
     Dates: start: 20180226, end: 20180301
  24. DEXAMETHASONE. [Concomitant]
     Active Substance: DEXAMETHASONE
     Dosage: 4 MILLIGRAM, 3 TIMES A DAY
     Route: 048
     Dates: start: 20180302, end: 20180303
  25. PREGABA [Concomitant]
     Active Substance: PREGABALIN
     Indication: DEPRESSED MOOD
     Dosage: 75 MILLIGRAM, ONCE A DAY, 75 MG, QD
     Route: 048
     Dates: start: 20170829, end: 20170905
  26. NIVOLUMAB BMS [Concomitant]
     Active Substance: NIVOLUMAB
     Indication: MALIGNANT MELANOMA
     Dosage: 1 MILLIGRAM/KILOGRAM, EVERY 3 WEEKS
     Route: 042
     Dates: start: 20181024, end: 20181024
  27. BIFITERAL [Concomitant]
     Active Substance: LACTULOSE
     Indication: PRODUCT USED FOR UNKNOWN INDICATION
     Dosage: 10 GRAM, ONCE A DAY
     Route: 048
     Dates: start: 20180225, end: 20180225
  28. PEMBROLIZUMAB. [Concomitant]
     Active Substance: PEMBROLIZUMAB
     Indication: MALIGNANT MELANOMA
     Dosage: 2 MILLIGRAM/KILOGRAM, ONCE A DAY
     Route: 048
     Dates: start: 20180517, end: 20181002
  29. MCP [Concomitant]
     Active Substance: METOCLOPRAMIDE HYDROCHLORIDE
     Dosage: 5 MILLIGRAM, 3 TIMES A DAY
     Route: 048
     Dates: start: 20180227, end: 20180227
  30. NOVAMINOSULFON [Concomitant]
     Active Substance: METAMIZOLE SODIUM
     Indication: MALIGNANT MELANOMA
     Dosage: 500 MILLIGRAM, PRN
     Route: 048
     Dates: start: 20161115, end: 20170406
  31. HYDROMORPHONE [Suspect]
     Active Substance: HYDROMORPHONE
     Indication: MALIGNANT MELANOMA
     Dosage: 4 MILLIGRAM, TWO TIMES A DAY
     Route: 048
     Dates: start: 20170407, end: 20170706
  32. TRAMETINIB [Suspect]
     Active Substance: TRAMETINIB
     Indication: METASTATIC MALIGNANT MELANOMA
     Dosage: 2 MILLIGRAM, ONCE A DAY
     Route: 048
     Dates: start: 20161019, end: 20161114
  33. PALLADON [Concomitant]
     Active Substance: HYDROMORPHONE
     Indication: MALIGNANT MELANOMA
     Dosage: 1.3 MILLIGRAM, PRN (UPTO QD AS NEEDED, 2 HOUR MINIMUM IN BETWEEN)
     Route: 048
     Dates: start: 20170407
  34. ZOFRAN [Concomitant]
     Active Substance: ONDANSETRON HYDROCHLORIDE
     Dosage: 8 MILLIGRAM, PRN
     Route: 048
     Dates: start: 20170308, end: 20180225
  35. LAXOBERAL [Concomitant]
     Active Substance: SODIUM PICOSULFATE
     Indication: MALIGNANT MELANOMA
     Dosage: 20 GTT DROPS, ONCE A DAY
     Route: 048
     Dates: start: 20170407, end: 20180225
  36. DEXAMETHASONE. [Concomitant]
     Active Substance: DEXAMETHASONE
     Indication: MALIGNANT MELANOMA
     Dosage: 4 MILLIGRAM, ONCE A DAY, 4 MG, QD
     Route: 048
     Dates: start: 20170829, end: 20171128
  37. DEXAMETHASONE. [Concomitant]
     Active Substance: DEXAMETHASONE
     Dosage: 4 MILLIGRAM, TWO TIMES A DAY
     Route: 048
     Dates: start: 20180304, end: 20180318
  38. PREGABA [Concomitant]
     Active Substance: PREGABALIN
     Dosage: 75 MILLIGRAM, TWO TIMES A DAY
     Route: 048
     Dates: start: 20180225
  39. CELEBREX [Concomitant]
     Active Substance: CELECOXIB
     Indication: PRODUCT USED FOR UNKNOWN INDICATION
     Dosage: 100 MILLIGRAM, ONCE A DAY
     Route: 048
     Dates: start: 20180302
  40. MCP [Concomitant]
     Active Substance: METOCLOPRAMIDE HYDROCHLORIDE
     Indication: MALIGNANT MELANOMA
     Dosage: 10 MILLIGRAM, 3 TIMES A DAY
     Route: 048
     Dates: start: 20170118
  41. TRAMETINIB [Suspect]
     Active Substance: TRAMETINIB
     Dosage: 2 MILLIGRAM, ONCE A DAY
     Route: 048
     Dates: start: 20161123, end: 20180513
  42. TAFINLAR [Suspect]
     Active Substance: DABRAFENIB MESYLATE
     Indication: METASTATIC MALIGNANT MELANOMA
     Dosage: 150 MILLIGRAM, TWO TIMES A DAY
     Route: 048
     Dates: start: 20161019, end: 20161114
  43. TAFINLAR [Suspect]
     Active Substance: DABRAFENIB MESYLATE
     Dosage: 300 MILLIGRAM, ONCE A DAY, 150 MG, BID
     Route: 048
     Dates: start: 20161117
  44. TAFINLAR [Suspect]
     Active Substance: DABRAFENIB MESYLATE
     Dosage: 150 MILLIGRAM, ONCE A DAY
     Route: 048
     Dates: start: 20161117
  45. TAFINLAR [Suspect]
     Active Substance: DABRAFENIB MESYLATE
     Dosage: 150 MILLIGRAM, TWO TIMES A DAY
     Route: 048
     Dates: start: 20161123, end: 20180513
  46. TILIDIN [Concomitant]
     Active Substance: NALOXONE HYDROCHLORIDE\TILIDINE HYDROCHLORIDE
     Indication: PRODUCT USED FOR UNKNOWN INDICATION
     Dosage: 50 MILLIGRAM, PRN
     Route: 048
     Dates: start: 20161115, end: 20170406
  47. CIPRALEX [Concomitant]
     Active Substance: ESCITALOPRAM OXALATE
     Indication: DEPRESSION
     Dosage: 10 MILLIGRAM, ONCE A DAY, 10 MG, QD
     Route: 048
     Dates: start: 20170518, end: 20180228
  48. METOCLOPRAMIDE. [Concomitant]
     Active Substance: METOCLOPRAMIDE
     Dosage: 5 MG, TID
     Route: 048
     Dates: start: 20180227, end: 20180227
  49. DEXAMETHASONE. [Concomitant]
     Active Substance: DEXAMETHASONE
     Dosage: 20 MILLIGRAM, ONCE A DAY
     Route: 042
     Dates: start: 20180225, end: 20180225
  50. PANTOPRAZOL [Concomitant]
     Active Substance: PANTOPRAZOLE SODIUM
     Indication: MALIGNANT MELANOMA
     Dosage: 40 MILLIGRAM, ONCE A DAY
     Route: 048
     Dates: start: 20170829
  51. MCP [Concomitant]
     Active Substance: METOCLOPRAMIDE HYDROCHLORIDE
     Dosage: 5 MILLIGRAM, TWO TIMES A DAY
     Route: 048
     Dates: start: 20180226, end: 20180226
  52. HYDROMORPHONE [Suspect]
     Active Substance: HYDROMORPHONE
     Indication: PAIN
     Dosage: 4 MILLIGRAM, 3 TIMES A DAY
     Route: 048
     Dates: start: 20170707, end: 20180224
  53. HYDROMORPHONE [Suspect]
     Active Substance: HYDROMORPHONE
     Dosage: 4 MILLIGRAM, 3 TIMES A DAY
     Route: 048
     Dates: start: 20170707, end: 20180224
  54. METOCLOPRAMIDE. [Concomitant]
     Active Substance: METOCLOPRAMIDE
     Dosage: 10 MG, TID
     Dates: start: 20180228, end: 20180303
  55. ZOFRAN [Concomitant]
     Active Substance: ONDANSETRON HYDROCHLORIDE
     Dosage: 16 MILLIGRAM, ONCE A DAY, 8 MG, BID
     Route: 048
     Dates: start: 20161115
  56. ZOFRAN [Concomitant]
     Active Substance: ONDANSETRON HYDROCHLORIDE
     Dosage: 4 MILLIGRAM, ONCE A DAY
     Route: 048
     Dates: start: 20180303, end: 20180303
  57. BETAHISTIN [Concomitant]
     Active Substance: BETAHISTINE
     Indication: PRODUCT USED FOR UNKNOWN INDICATION
     Dosage: 6 MG, TID
     Route: 048
     Dates: start: 20180225, end: 20180225
  58. METOCLOPRAMIDE. [Concomitant]
     Active Substance: METOCLOPRAMIDE
     Dosage: 300 MILLIGRAM, ONCE A DAY, 10MG, TID
     Route: 048
     Dates: start: 20170118
  59. LAXOBERAL [Concomitant]
     Active Substance: SODIUM PICOSULFATE
     Dosage: 20 GTT DROPS, PRN
     Route: 048
     Dates: start: 20180516
  60. PREGABA [Concomitant]
     Active Substance: PREGABALIN
     Dosage: 150 MILLIGRAM, ONCE A DAY, 150 MG, QD
     Route: 048
     Dates: start: 20171129
  61. MOVICOL [Concomitant]
     Active Substance: POLYETHYLENE GLYCOL 3350\POTASSIUM CHLORIDE\SODIUM BICARBONATE\SODIUM CHLORIDE
     Indication: PRODUCT USED FOR UNKNOWN INDICATION
     Dosage: 13.81 GRAM, ONCE A DAY, 13.81 G, QD
     Route: 048
     Dates: start: 20170829, end: 20171128
  62. BETAHISTIN [Concomitant]
     Active Substance: BETAHISTINE
     Dosage: 6 MG, TID
     Route: 048
     Dates: start: 20180226, end: 20180226
  63. CLEXANE [Concomitant]
     Active Substance: ENOXAPARIN SODIUM
     Indication: PRODUCT USED FOR UNKNOWN INDICATION
     Dosage: 40 MILLIGRAM, ONCE A DAY
     Route: 058
     Dates: start: 20180226, end: 20180303
  64. TAFINLAR [Suspect]
     Active Substance: DABRAFENIB MESYLATE
     Dosage: 2 MILLIGRAM, ONCE A DAY
     Route: 048
     Dates: start: 20161117, end: 20161122
  65. CIPRALEX [Concomitant]
     Active Substance: ESCITALOPRAM OXALATE
     Dosage: 10 MILLIGRAM, ONCE A DAY
     Route: 048
     Dates: start: 20180312
  66. METOCLOPRAMIDE. [Concomitant]
     Active Substance: METOCLOPRAMIDE
     Indication: MALIGNANT MELANOMA
     Dosage: 10 MG, TWO TIMES A DAY
     Route: 048
     Dates: start: 20170118
  67. METOCLOPRAMIDE. [Concomitant]
     Active Substance: METOCLOPRAMIDE
     Dosage: 10 MILLIGRAM, ONCE A DAY, 10 MG, TID
     Route: 048
     Dates: start: 20170118
  68. ZOFRAN [Concomitant]
     Active Substance: ONDANSETRON HYDROCHLORIDE
     Dosage: 4 MILLIGRAM, TWO TIMES A DAY
     Route: 042
     Dates: start: 20180226, end: 20180226
  69. ZOFRAN [Concomitant]
     Active Substance: ONDANSETRON HYDROCHLORIDE
     Dosage: 4 MILLIGRAM, 3 TIMES A DAY
     Route: 042
     Dates: start: 20180227, end: 20180302
  70. ZOFRAN [Concomitant]
     Active Substance: ONDANSETRON HYDROCHLORIDE
     Dosage: 8 MILLIGRAM, 3 TIMES A DAY
     Route: 048
     Dates: start: 20180312
  71. DEXAMETHASONE. [Concomitant]
     Active Substance: DEXAMETHASONE
     Dosage: 8 MILLIGRAM, ONCE A DAY
     Route: 042
     Dates: start: 20180225, end: 20180225
  72. PREGABA [Concomitant]
     Active Substance: PREGABALIN
     Dosage: 75 MILLIGRAM, TWO TIMES A DAY
     Route: 048
     Dates: start: 20170906, end: 20180224
  73. PREGABA [Concomitant]
     Active Substance: PREGABALIN
     Dosage: 100 MILLIGRAM, ONCE A DAY
     Route: 048
     Dates: start: 20180225
  74. ORTOTON [Concomitant]
     Indication: PRODUCT USED FOR UNKNOWN INDICATION
     Dosage: 750 MILLIGRAM, THREE TIMES AS NEEDED
     Route: 048
     Dates: start: 20180516
  75. ABSTRAL [Concomitant]
     Active Substance: FENTANYL CITRATE
     Indication: MALIGNANT MELANOMA
     Dosage: 200 MICROGRAM, FOUR TIMES/DAY (800 MICROGRAM ONCE A DAY)
     Route: 048
     Dates: start: 20180516
  76. NOVAMINOSULFON [Concomitant]
     Active Substance: METAMIZOLE SODIUM
     Dosage: 100 MILLIGRAM, TWO TIMES A DAY
     Route: 048
     Dates: start: 20170917, end: 20170917

REACTIONS (10)
  - Intracranial pressure increased [Recovered/Resolved]
  - Abdominal pain [Recovered/Resolved]
  - Arthralgia [Not Recovered/Not Resolved]
  - Metastatic malignant melanoma [Fatal]
  - Constipation [Recovered/Resolved]
  - Ageusia [Not Recovered/Not Resolved]
  - Malignant neoplasm progression [Fatal]
  - Nausea [Unknown]
  - Dry skin [Not Recovered/Not Resolved]
  - Myalgia [Not Recovered/Not Resolved]

NARRATIVE: CASE EVENT DATE: 20170118
